FAERS Safety Report 10510797 (Version 1)
Quarter: 2014Q3

REPORT INFORMATION
  Report Type: Spontaneous
  Country: US (occurrence: None)
  Receive Date: 20140915
  Receipt Date: 20140915
  Transmission Date: 20150326
  Serious: Yes (Other)
  Sender: FDA-Public Use
  Company Number: 2014-US-008893

PATIENT
  Age: 43 Year
  Sex: Female

DRUGS (4)
  1. XYREM [Suspect]
     Active Substance: SODIUM OXYBATE
     Indication: CATAPLEXY
     Route: 048
     Dates: start: 201403, end: 201404
  2. RITALIN (METHYLPHENIDATE HYDROCHLORIDE) [Suspect]
     Active Substance: METHYLPHENIDATE HYDROCHLORIDE
     Indication: PRODUCT USED FOR UNKNOWN INDICATION
     Dates: start: 2014, end: 2014
  3. XYREM [Suspect]
     Active Substance: SODIUM OXYBATE
     Indication: NARCOLEPSY
     Route: 048
     Dates: start: 201403, end: 201404
  4. ADDERALL [Suspect]
     Active Substance: AMPHETAMINE ASPARTATE\AMPHETAMINE SULFATE\DEXTROAMPHETAMINE SACCHARATE\DEXTROAMPHETAMINE SULFATE
     Indication: PRODUCT USED FOR UNKNOWN INDICATION
     Dates: end: 2014

REACTIONS (7)
  - Hallucination, auditory [None]
  - Tremor [None]
  - Anxiety [None]
  - Bruxism [None]
  - Hyperhidrosis [None]
  - Psychotic disorder [None]
  - Foreign body sensation in eyes [None]

NARRATIVE: CASE EVENT DATE: 2014
